FAERS Safety Report 5814638-8 (Version None)
Quarter: 2008Q3

REPORT INFORMATION
  Report Type: 
  Country: None (occurrence: None)
  Receive Date: 20080718
  Receipt Date: 20070912
  Transmission Date: 20090109
  Serious: No
  Sender: FDA-Public Use
  Company Number: US-KINGPHARMUSA00001-K200701173

PATIENT

DRUGS (3)
  1. LEVOXYL [Suspect]
     Indication: THYROIDECTOMY
     Dates: end: 20070909
  2. ACTONEL [Concomitant]
  3. OTHER UNKNOWN MEDICATIONS [Concomitant]

REACTIONS (2)
  - DIARRHOEA [None]
  - TREMOR [None]
